FAERS Safety Report 9668164 (Version 2)
Quarter: 2013Q4

REPORT INFORMATION
  Report Type: Spontaneous
  Country: US (occurrence: US)
  Receive Date: 20131104
  Receipt Date: 20131115
  Transmission Date: 20140711
  Serious: No
  Sender: FDA-Public Use
  Company Number: US-PFIZER INC-2013311566

PATIENT
  Age: 57 Year
  Sex: Female

DRUGS (3)
  1. PRISTIQ [Suspect]
     Indication: MAJOR DEPRESSION
     Dosage: 50 MG, DAILY
     Route: 048
     Dates: start: 20130911
  2. REMERON [Concomitant]
     Indication: DEPRESSION
     Dosage: 40 MG, 1X/DAY (QHS)
  3. WELLBUTRIN XL [Concomitant]
     Indication: DEPRESSION
     Dosage: 450 MG, 1X/DAY

REACTIONS (1)
  - Blood glucose increased [Unknown]
